FAERS Safety Report 25206365 (Version 2)
Quarter: 2025Q2

REPORT INFORMATION
  Report Type: Report from Study
  Country: US (occurrence: US)
  Receive Date: 20250417
  Receipt Date: 20250424
  Transmission Date: 20250716
  Serious: Yes (Hospitalization, Other)
  Sender: PHARMING GROUP
  Company Number: US-PHARMING-PHAUS2025000538

PATIENT

DRUGS (2)
  1. RUCONEST [Suspect]
     Active Substance: CONESTAT ALFA
     Indication: Hereditary angioedema
     Route: 042
  2. SAJAZIR [Concomitant]
     Active Substance: ICATIBANT ACETATE
     Indication: Product used for unknown indication

REACTIONS (8)
  - Pneumonia fungal [Unknown]
  - Tracheal haemorrhage [Unknown]
  - Pericarditis [Unknown]
  - Immunodeficiency [Unknown]
  - Drug ineffective [Unknown]
  - Tracheitis [Unknown]
  - Bronchitis [Unknown]
  - Central venous catheterisation [Unknown]
